FAERS Safety Report 9036517 (Version 1)
Quarter: 2013Q1

REPORT INFORMATION
  Report Type: Spontaneous
  Country: US (occurrence: None)
  Receive Date: 20130123
  Receipt Date: 20130123
  Transmission Date: 20140127
  Serious: No
  Sender: FDA-Public Use
  Company Number: None

PATIENT
  Age: 63 Year
  Sex: Female
  Weight: 71.22 kg

DRUGS (2)
  1. PREDNISONE [Suspect]
     Indication: BRONCHITIS
     Dosage: 3 2XFOR 3 DAYS, 2 2X 3 DAYS PO
     Route: 048
     Dates: start: 20130107, end: 20130115
  2. PREDNISONE [Suspect]
     Indication: ASTHMA
     Dosage: 3 2XFOR 3 DAYS, 2 2X 3 DAYS PO
     Route: 048
     Dates: start: 20130107, end: 20130115

REACTIONS (3)
  - Pain in extremity [None]
  - Pain in extremity [None]
  - Insomnia [None]
